FAERS Safety Report 10901570 (Version 1)
Quarter: 2015Q1

REPORT INFORMATION
  Report Type: Spontaneous
  Country: CA (occurrence: CA)
  Receive Date: 20150310
  Receipt Date: 20150310
  Transmission Date: 20150721
  Serious: Yes (Other)
  Sender: FDA-Public Use
  Company Number: CA-009507513-1306CAN000263

PATIENT
  Age: 53 Year
  Sex: Female

DRUGS (3)
  1. PEGASYS [Suspect]
     Active Substance: PEGINTERFERON ALFA-2A
     Indication: HEPATITIS C
     Dosage: 180 MICROGRAM, 1 WEEKS
     Route: 058
     Dates: start: 20130409, end: 2013
  2. VICTRELIS [Suspect]
     Active Substance: BOCEPREVIR
     Dosage: 800 MG, TID, 3 EVERY 1 DAY
     Route: 048
     Dates: end: 2013
  3. COPEGUS [Suspect]
     Active Substance: RIBAVIRIN
     Indication: HEPATITIS C
     Dosage: 1000 MG, QD,  1 EVERY IN 1 DAY
     Route: 048
     Dates: start: 20130409, end: 2013

REACTIONS (4)
  - Epistaxis [Unknown]
  - Drug ineffective [Unknown]
  - Hyperchlorhydria [Unknown]
  - Treatment failure [Unknown]

NARRATIVE: CASE EVENT DATE: 201305
